FAERS Safety Report 9649099 (Version 1)
Quarter: 2013Q4

REPORT INFORMATION
  Report Type: Spontaneous
  Country: DE (occurrence: DE)
  Receive Date: 20131028
  Receipt Date: 20131028
  Transmission Date: 20140711
  Serious: Yes (Other)
  Sender: FDA-Public Use
  Company Number: PHHY2013DE120571

PATIENT
  Sex: Female

DRUGS (5)
  1. IMMUNOSPORIN [Suspect]
     Indication: UVEITIS
     Dosage: 75 MG, BID
     Route: 048
     Dates: start: 20130901, end: 2013
  2. IMMUNOSPORIN [Suspect]
     Dosage: 100 MG, BID
     Route: 048
     Dates: start: 2013, end: 2013
  3. IMMUNOSPORIN [Suspect]
     Dosage: 75 MG, BID
     Route: 048
     Dates: start: 2013
  4. DECORTIN [Concomitant]
     Indication: UVEITIS
     Dosage: 20 MG, DAILY
     Route: 048
     Dates: start: 2008, end: 201310
  5. DECORTIN [Concomitant]
     Dosage: 20 MG, DAILY
     Route: 048
     Dates: start: 2001

REACTIONS (5)
  - Intraocular pressure increased [Recovered/Resolved]
  - Hypergammaglobulinaemia benign monoclonal [Not Recovered/Not Resolved]
  - Abnormal sensation in eye [Recovered/Resolved]
  - Paraproteinaemia [Not Recovered/Not Resolved]
  - Myalgia [Not Recovered/Not Resolved]
